FAERS Safety Report 4778376-5 (Version None)
Quarter: 2005Q3

REPORT INFORMATION
  Report Type: 
  Country: None (occurrence: None)
  Receive Date: 20050926
  Receipt Date: 20050922
  Transmission Date: 20060218
  Serious: Yes (Other)
  Sender: FDA-Public Use
  Company Number: US-GLAXOSMITHKLINE-A0575452A

PATIENT
  Age: 63 Year
  Sex: Female

DRUGS (6)
  1. ADVAIR DISKUS 100/50 [Suspect]
     Indication: ASTHMA
     Dosage: 1PUFF TWICE PER DAY
     Route: 055
     Dates: start: 20030901
  2. DEPAKOTE [Concomitant]
  3. SYNTHROID [Concomitant]
  4. RHINOCORT [Concomitant]
  5. ALBUTEROL [Concomitant]
  6. SINGULAIR [Concomitant]

REACTIONS (3)
  - ASTHMA [None]
  - DIFFICULTY IN WALKING [None]
  - WEIGHT INCREASED [None]
